FAERS Safety Report 6213279-0 (Version None)
Quarter: 2009Q2

REPORT INFORMATION
  Report Type: 
  Country: None (occurrence: None)
  Receive Date: 20090603
  Receipt Date: 20090527
  Transmission Date: 20091009
  Serious: Yes (Life-Threatening, Hospitalization, Disabling)
  Sender: FDA-Public Use
  Company Number: JP-MERCK-0903USA04644

PATIENT
  Age: 68 Year
  Sex: Female
  Weight: 38 kg

DRUGS (7)
  1. SINGULAIR [Suspect]
     Indication: ASTHMA
     Route: 048
     Dates: start: 20070427, end: 20090323
  2. ADOAIR [Concomitant]
     Indication: ASTHMA
  3. THEOLONG [Concomitant]
     Indication: ASTHMA
     Route: 048
  4. MUCODYNE [Concomitant]
     Indication: ASTHMA
     Route: 048
  5. MUCOSOLVAN [Concomitant]
     Indication: ASTHMA
     Route: 048
  6. KLARICID [Concomitant]
     Indication: RHINITIS ALLERGIC
     Route: 048
  7. ALLELOCK [Concomitant]
     Indication: ASTHMA
     Route: 048

REACTIONS (1)
  - ALLERGIC GRANULOMATOUS ANGIITIS [None]
